FAERS Safety Report 15131281 (Version 1)
Quarter: 2018Q3

REPORT INFORMATION
  Report Type: Spontaneous
  Country: IT (occurrence: IT)
  Receive Date: 20180711
  Receipt Date: 20180711
  Transmission Date: 20181010
  Serious: Yes (Hospitalization)
  Sender: FDA-Public Use
  Company Number: IT-MYLANLABS-2018M1049058

PATIENT
  Age: 48 Year
  Sex: Male

DRUGS (1)
  1. DIAZEPAM. [Suspect]
     Active Substance: DIAZEPAM
     Indication: ANXIETY
     Dosage: 30 MG, QD
     Route: 048

REACTIONS (3)
  - Drug dependence [Unknown]
  - Drug abuse [Unknown]
  - No adverse event [Unknown]

NARRATIVE: CASE EVENT DATE: 20180327
